FAERS Safety Report 7852032-9 (Version None)
Quarter: 2011Q3

REPORT INFORMATION
  Report Type: 
  Country: None (occurrence: None)
  Receive Date: 20110906
  Receipt Date: 20110526
  Transmission Date: 20111222
  Serious: No
  Sender: FDA-Public Use
  Company Number: 201105088

PATIENT
  Sex: Male

DRUGS (2)
  1. XIAFLEX [Suspect]
     Indication: DUPUYTREN'S CONTRACTURE
     Dosage: 1 IN 1 D, INTRALESIONAL ; 1 IN 1 D, INTRALESIONAL
     Route: 026
     Dates: start: 20100701, end: 20100701
  2. XIAFLEX [Suspect]
     Indication: DUPUYTREN'S CONTRACTURE
     Dosage: 1 IN 1 D, INTRALESIONAL ; 1 IN 1 D, INTRALESIONAL
     Route: 026
     Dates: start: 20110525, end: 20110525

REACTIONS (4)
  - PYREXIA [None]
  - SWELLING [None]
  - CONTUSION [None]
  - PAIN [None]
